FAERS Safety Report 22682776 (Version 4)
Quarter: 2024Q4

REPORT INFORMATION
  Report Type: Spontaneous
  Country: US (occurrence: US)
  Receive Date: 20230707
  Receipt Date: 20241210
  Transmission Date: 20250115
  Serious: No
  Sender: VERTEX
  Company Number: US-VERTEX PHARMACEUTICALS-2023-009618

PATIENT
  Age: 40 Year
  Sex: Female

DRUGS (2)
  1. TRIKAFTA [Suspect]
     Active Substance: ELEXACAFTOR\IVACAFTOR\TEZACAFTOR
     Indication: Cystic fibrosis
     Dosage: UNKNOWN DOSAGE REGIMEN
     Route: 048
     Dates: start: 2021
  2. MIRALAX [Concomitant]
     Active Substance: POLYETHYLENE GLYCOL 3350
     Dosage: PEG 3350

REACTIONS (9)
  - Overweight [Not Recovered/Not Resolved]
  - Gastrointestinal motility disorder [Not Recovered/Not Resolved]
  - Secretion discharge [Unknown]
  - Odynophagia [Recovering/Resolving]
  - Dysphagia [Recovering/Resolving]
  - Oesophageal disorder [Recovering/Resolving]
  - Impaired gastric emptying [Recovering/Resolving]
  - Asthma [Not Recovered/Not Resolved]
  - Pseudomonas test positive [Unknown]
